FAERS Safety Report 5831220-7 (Version None)
Quarter: 2008Q3

REPORT INFORMATION
  Report Type: 
  Country: None (occurrence: None)
  Receive Date: 20080801
  Receipt Date: 20071102
  Transmission Date: 20090109
  Serious: No
  Sender: FDA-Public Use
  Company Number: US-BRISTOL-MYERS SQUIBB COMPANY-13816392

PATIENT
  Age: 79 Year
  Sex: Female
  Weight: 74 kg

DRUGS (8)
  1. COUMADIN [Suspect]
     Indication: VARICOSE VEIN
     Dosage: ONCE IN A WHILE SHE TAKES 5MG
  2. COUMADIN [Suspect]
     Indication: CATHETERISATION CARDIAC
     Dosage: ONCE IN A WHILE SHE TAKES 5MG
  3. COUMADIN [Suspect]
     Indication: AORTIC ANEURYSM
     Dosage: ONCE IN A WHILE SHE TAKES 5MG
  4. COUMADIN [Suspect]
     Indication: PULMONARY THROMBOSIS
     Dosage: ONCE IN A WHILE SHE TAKES 5MG
  5. PRAVASTATIN [Concomitant]
  6. FUROSEMIDE [Concomitant]
  7. NADOLOL [Concomitant]
  8. LISINOPRIL [Concomitant]

REACTIONS (9)
  - ALOPECIA [None]
  - ANOREXIA [None]
  - BODY TEMPERATURE INCREASED [None]
  - COUGH [None]
  - CYANOSIS [None]
  - FATIGUE [None]
  - INSOMNIA [None]
  - SWELLING [None]
  - URINARY TRACT INFECTION [None]
